FAERS Safety Report 14846836 (Version 1)
Quarter: 2018Q2

REPORT INFORMATION
  Report Type: Spontaneous
  Country: FR (occurrence: FR)
  Receive Date: 20180504
  Receipt Date: 20180504
  Transmission Date: 20180711
  Serious: Yes (Hospitalization)
  Sender: FDA-Public Use
  Company Number: FR-MERCK KGAA-2047203

PATIENT
  Age: 44 Year
  Sex: Female

DRUGS (1)
  1. NOVOTHYROX [Suspect]
     Active Substance: LEVOTHYROXINE SODIUM
     Indication: POST PROCEDURAL HYPOTHYROIDISM
     Dates: start: 201702, end: 201710

REACTIONS (17)
  - Decreased interest [Recovered/Resolved]
  - Social avoidant behaviour [None]
  - Pain [Recovered/Resolved]
  - Insomnia [None]
  - Loss of personal independence in daily activities [None]
  - Hypocalcaemia [None]
  - Arthralgia [None]
  - Sleep disorder [None]
  - Depression [Recovered/Resolved]
  - Mood swings [Recovered/Resolved]
  - Asthenia [None]
  - Libido decreased [None]
  - Anxiety [None]
  - Fatigue [None]
  - Alopecia [None]
  - Personal relationship issue [None]
  - Headache [None]

NARRATIVE: CASE EVENT DATE: 2017
